FAERS Safety Report 5819790-6 (Version None)
Quarter: 2008Q3

REPORT INFORMATION
  Report Type: 
  Country: None (occurrence: None)
  Receive Date: 20080723
  Receipt Date: 20080717
  Transmission Date: 20090109
  Serious: Yes (Hospitalization, Other)
  Sender: FDA-Public Use
  Company Number: JP-ABBOTT-08P-087-0455838-00

PATIENT
  Sex: Female

DRUGS (8)
  1. EURODIN [Suspect]
     Indication: DEPRESSION
     Route: 048
     Dates: start: 20030401
  2. EURODIN [Suspect]
     Indication: INSOMNIA
     Route: 048
     Dates: start: 20050622, end: 20050622
  3. EURODIN [Suspect]
     Route: 048
  4. FLUNITRAZEPAM [Suspect]
     Indication: INSOMNIA
     Route: 048
     Dates: start: 20050401
  5. FLUNITRAZEPAM [Suspect]
     Route: 048
     Dates: start: 20050622, end: 20050622
  6. FLUNITRAZEPAM [Suspect]
     Route: 048
     Dates: start: 20050628
  7. FLUNITRAZEPAM [Suspect]
     Route: 048
     Dates: start: 20050622, end: 20050622
  8. FLUNITRAZEPAM [Suspect]
     Dates: start: 20050628

REACTIONS (2)
  - DEPRESSED LEVEL OF CONSCIOUSNESS [None]
  - SUICIDE ATTEMPT [None]
